FAERS Safety Report 7930238-8 (Version None)
Quarter: 2011Q4

REPORT INFORMATION
  Report Type: 
  Country: None (occurrence: None)
  Receive Date: 20111118
  Receipt Date: 20111118
  Transmission Date: 20120403
  Serious: Yes (Life-Threatening)
  Sender: FDA-Public Use
  Company Number: None

PATIENT
  Age: 73 Year
  Sex: Male
  Weight: 53.2 kg

DRUGS (6)
  1. DABIGATRAN [Suspect]
     Indication: VASCULAR OPERATION
     Dosage: 150 MG BID PO  ; 100 MG BID PO
     Route: 048
     Dates: start: 20110802, end: 20110812
  2. DABIGATRAN [Suspect]
     Indication: ATRIAL FIBRILLATION
     Dosage: 150 MG BID PO  ; 100 MG BID PO
     Route: 048
     Dates: start: 20110802, end: 20110812
  3. DABIGATRAN [Suspect]
     Indication: CEREBROVASCULAR ACCIDENT PROPHYLAXIS
     Dosage: 150 MG BID PO  ; 100 MG BID PO
     Route: 048
     Dates: start: 20110802, end: 20110812
  4. DABIGATRAN [Suspect]
     Indication: VASCULAR OPERATION
     Dosage: 150 MG BID PO  ; 100 MG BID PO
     Route: 048
     Dates: start: 20070907, end: 20110812
  5. DABIGATRAN [Suspect]
     Indication: ATRIAL FIBRILLATION
     Dosage: 150 MG BID PO  ; 100 MG BID PO
     Route: 048
     Dates: start: 20070907, end: 20110812
  6. DABIGATRAN [Suspect]
     Indication: CEREBROVASCULAR ACCIDENT PROPHYLAXIS
     Dosage: 150 MG BID PO  ; 100 MG BID PO
     Route: 048
     Dates: start: 20070907, end: 20110812

REACTIONS (2)
  - HAEMORRHAGE [None]
  - GASTRIC HAEMORRHAGE [None]
